FAERS Safety Report 10596341 (Version 1)
Quarter: 2014Q4

REPORT INFORMATION
  Report Type: Spontaneous
  Country: US (occurrence: US)
  Receive Date: 20141120
  Receipt Date: 20141120
  Transmission Date: 20150529
  Serious: Yes (Other)
  Sender: FDA-Public Use
  Company Number: US-BAYER-2014-171862

PATIENT
  Age: 22 Year
  Sex: Female

DRUGS (1)
  1. MIRENA [Suspect]
     Active Substance: LEVONORGESTREL
     Indication: CONTRACEPTION
     Dosage: 20 MCG/24HR, CONT
     Route: 015
     Dates: start: 20140701, end: 20140802

REACTIONS (6)
  - Device dislocation [None]
  - Amenorrhoea [None]
  - Procedural pain [Recovered/Resolved]
  - Complication of device insertion [None]
  - Pain [None]
  - Presyncope [None]

NARRATIVE: CASE EVENT DATE: 2014
